FAERS Safety Report 10168006 (Version 1)
Quarter: 2014Q2

REPORT INFORMATION
  Report Type: Spontaneous
  Country: JP (occurrence: JP)
  Receive Date: 20140512
  Receipt Date: 20140512
  Transmission Date: 20141212
  Serious: Yes (Other)
  Sender: FDA-Public Use
  Company Number: PHHY2014JP054797

PATIENT
  Age: 69 Year
  Sex: Male

DRUGS (5)
  1. OXALIPLATIN [Suspect]
     Indication: COLON CANCER
     Dosage: 85 MG/M2, UNK
  2. LEUCOVORIN CALCIUM [Suspect]
     Indication: COLON CANCER
     Dosage: 200 MG/M2, UNK
  3. 5-FLUOROURACIL [Suspect]
     Indication: COLON CANCER
     Dosage: 400 MG/M2, UNK
     Route: 040
  4. 5-FLUOROURACIL [Suspect]
     Dosage: 2400 MG/M2, UNK
     Route: 042
  5. BEVACIZUMAB [Suspect]
     Indication: COLON CANCER
     Dosage: 5 MG/KG, UNK

REACTIONS (4)
  - Interstitial lung disease [Recovering/Resolving]
  - Rales [Recovering/Resolving]
  - Lung infiltration [Recovering/Resolving]
  - Pulmonary fibrosis [Recovering/Resolving]
